FAERS Safety Report 8183703-5 (Version None)
Quarter: 2012Q1

REPORT INFORMATION
  Report Type: 
  Country: None (occurrence: None)
  Receive Date: 20120305
  Receipt Date: 20120229
  Transmission Date: 20120608
  Serious: Yes (Death)
  Sender: FDA-Public Use
  Company Number: PHHY2012JP015023

PATIENT
  Age: 85 Year
  Sex: Female

DRUGS (9)
  1. MUCOSTA [Concomitant]
  2. LANSOPRAZOLE [Concomitant]
     Route: 048
  3. RASILEZ [Suspect]
     Indication: HYPERTENSION
     Dosage: 150 MG, QD
     Route: 048
     Dates: start: 20101217, end: 20120101
  4. CANDESARTAN CILEXETIL [Concomitant]
     Dosage: 8 MG
     Route: 048
     Dates: start: 20100101
  5. ADALAT CC [Concomitant]
     Dosage: 25 MG, UNK
     Route: 048
     Dates: start: 20100101
  6. HUMALOG [Concomitant]
     Dosage: 32 IU
     Route: 058
  7. BUFFERIN [Concomitant]
     Dosage: 330 MG, UNK
     Route: 048
  8. LIPITOR [Concomitant]
     Dosage: 10 MG
     Route: 048
  9. ASPIRIN [Concomitant]
     Route: 048

REACTIONS (2)
  - CEREBRAL HAEMORRHAGE [None]
  - LOSS OF CONSCIOUSNESS [None]
